FAERS Safety Report 12704322 (Version 1)
Quarter: 2016Q3

REPORT INFORMATION
  Report Type: Spontaneous
  Country: US (occurrence: US)
  Receive Date: 20160831
  Receipt Date: 20160831
  Transmission Date: 20161109
  Serious: Yes (Hospitalization, Other)
  Sender: FDA-Public Use
  Company Number: US-SMITH AND NEPHEW, INC-2016SMT00727

PATIENT
  Age: 71 Year
  Sex: Male
  Weight: 76.19 kg

DRUGS (4)
  1. LEVEMIR [Concomitant]
     Active Substance: INSULIN DETEMIR
     Dosage: UNK, 1X/DAY
  2. NOVOLOG [Concomitant]
     Active Substance: INSULIN ASPART
     Dosage: SLIDING SCALE
  3. ASPIRIN. [Concomitant]
     Active Substance: ASPIRIN
     Dosage: 81 MG, 1X/DAY
  4. REGRANEX [Suspect]
     Active Substance: BECAPLERMIN
     Indication: DIABETIC ULCER
     Dosage: UNK, 1X/DAY
     Route: 061
     Dates: start: 20160719, end: 20160727

REACTIONS (7)
  - Multiple fractures [Unknown]
  - Peripheral vascular disorder [Unknown]
  - Weight decreased [Unknown]
  - Wound infection [Recovered/Resolved]
  - Fungal infection [None]
  - Blood glucose decreased [Unknown]
  - Peripheral embolism [Recovered/Resolved]

NARRATIVE: CASE EVENT DATE: 2016
